FAERS Safety Report 4596184-5 (Version None)
Quarter: 2005Q1

REPORT INFORMATION
  Report Type: 
  Country: None (occurrence: None)
  Receive Date: 20050225
  Receipt Date: 20050214
  Transmission Date: 20050727
  Serious: Yes (Hospitalization)
  Sender: FDA-Public Use
  Company Number: HQWYE347415FEB05

PATIENT
  Age: 1 Day
  Sex: Male
  Weight: 3.18 kg

DRUGS (4)
  1. EFFEXOR XR [Suspect]
     Indication: DEPRESSION
     Dosage: TRANSPLACENTAL
     Route: 064
     Dates: start: 20010101
  2. SIMETHICONE (DIMETICONE, ACTIVATED) [Concomitant]
  3. TUMS (CALCIUM CARBONATE/MAGNESIUM CARBONATE/MAGNESIUM TRISILICATE) [Concomitant]
  4. MULTIVITAMINS, PLAIN (MULTIVITAMINS, PLAIN) [Concomitant]

REACTIONS (13)
  - CONVULSION NEONATAL [None]
  - CYANOSIS NEONATAL [None]
  - DRUG EXPOSURE DURING PREGNANCY [None]
  - DRUG WITHDRAWAL SYNDROME NEONATAL [None]
  - ELECTROENCEPHALOGRAM ABNORMAL [None]
  - HYPOTHERMIA NEONATAL [None]
  - NASAL FLARING [None]
  - NEONATAL APNOEIC ATTACK [None]
  - NEONATAL DISORDER [None]
  - NEONATAL HYPOXIA [None]
  - OXYGEN SATURATION DECREASED [None]
  - TRANSIENT TACHYPNOEA OF THE NEWBORN [None]
  - TREMOR NEONATAL [None]
